FAERS Safety Report 8295558-9 (Version None)
Quarter: 2012Q2

REPORT INFORMATION
  Report Type: 
  Country: None (occurrence: None)
  Receive Date: 20120418
  Receipt Date: 20120409
  Transmission Date: 20120825
  Serious: Yes (Other)
  Sender: FDA-Public Use
  Company Number: US-ASTRAZENECA-2011SE18878

PATIENT
  Age: 66 Year
  Sex: Female

DRUGS (6)
  1. NEXIUM [Suspect]
     Dosage: TWICE DAILY
     Route: 048
  2. UNKNOWN MEDICATION [Concomitant]
     Indication: CARDIAC DISORDER
  3. CRESTOR [Suspect]
     Route: 048
  4. UNKNOWN MEDICATION [Concomitant]
     Indication: RENAL DISORDER
  5. NEXIUM [Suspect]
     Indication: GASTROOESOPHAGEAL REFLUX DISEASE
     Route: 048
  6. NEXIUM [Suspect]
     Route: 048

REACTIONS (13)
  - DRUG EFFECT DECREASED [None]
  - GASTROOESOPHAGEAL REFLUX DISEASE [None]
  - ADVERSE EVENT [None]
  - INTENTIONAL DRUG MISUSE [None]
  - MYOCARDIAL INFARCTION [None]
  - CARDIAC ARREST [None]
  - INAPPROPRIATE SCHEDULE OF DRUG ADMINISTRATION [None]
  - DRUG INEFFECTIVE [None]
  - ERUCTATION [None]
  - DYSPEPSIA [None]
  - HYPERTENSION [None]
  - MALAISE [None]
  - CARDIAC DISORDER [None]
